FAERS Safety Report 5374922-1 (Version None)
Quarter: 2007Q2

REPORT INFORMATION
  Report Type: 
  Country: None (occurrence: None)
  Receive Date: 20070629
  Receipt Date: 20070614
  Transmission Date: 20071010
  Serious: Yes (Life-Threatening, Hospitalization)
  Sender: FDA-Public Use
  Company Number: DE-ELI_LILLY_AND_COMPANY-DE200702003873

PATIENT
  Age: 71 Year
  Sex: Male
  Weight: 74.8 kg

DRUGS (2)
  1. GEMZAR [Suspect]
     Indication: BRONCHIAL CARCINOMA
     Dosage: 1000 MG/M2, OTHER
  2. FURESIS [Concomitant]

REACTIONS (6)
  - BLOOD PRESSURE DECREASED [None]
  - DYSPNOEA [None]
  - LUNG DISORDER [None]
  - MYOCARDIAL ISCHAEMIA [None]
  - RESPIRATORY FAILURE [None]
  - TACHYCARDIA [None]
